FAERS Safety Report 6423924-2 (Version None)
Quarter: 2009Q4

REPORT INFORMATION
  Report Type: 
  Country: None (occurrence: None)
  Receive Date: 20091102
  Receipt Date: 20091019
  Transmission Date: 20100525
  Serious: Yes (Hospitalization)
  Sender: FDA-Public Use
  Company Number: PHHY2009CL45096

PATIENT
  Age: 80 Year
  Sex: Female

DRUGS (2)
  1. TAREG D [Suspect]
     Indication: HYPERTENSION
     Dosage: 2 TABLETS/DAY
  2. GLUCOSAMINA [Concomitant]

REACTIONS (2)
  - KNEE OPERATION [None]
  - OSTEOARTHRITIS [None]
